FAERS Safety Report 6873550 (Version 5)
Quarter: 2013Q4

REPORT INFORMATION
  Report Type: Spontaneous
  Country: US (occurrence: US)
  Receive Date: 20090106
  Receipt Date: 20131122
  Transmission Date: 20140711
  Serious: Yes (Life-Threatening)
  Sender: FDA-Public Use
  Company Number: US-ASTRAZENECA-2008UW28984

PATIENT
  Age: 51 Year
  Sex: Male
  Weight: 104.3 kg

DRUGS (6)
  1. SEROQUEL [Suspect]
     Indication: SCHIZOAFFECTIVE DISORDER
     Route: 048
  2. SEROQUEL [Suspect]
     Indication: SCHIZOAFFECTIVE DISORDER
     Route: 048
     Dates: start: 2003, end: 20131119
  3. SEROQUEL [Suspect]
     Indication: SCHIZOAFFECTIVE DISORDER
     Route: 048
  4. HALDOL [Suspect]
     Route: 065
  5. GLIPIZIDE XL [Concomitant]
     Indication: CARDIAC DISORDER
     Route: 048
  6. MULTIVITAMIN [Concomitant]
     Dosage: DAILY
     Route: 048

REACTIONS (12)
  - Coma [Unknown]
  - Apparent death [Unknown]
  - Adverse drug reaction [Unknown]
  - Agitation [Unknown]
  - Thyroid disorder [Unknown]
  - Disorientation [Unknown]
  - Feeling abnormal [Unknown]
  - Communication disorder [Unknown]
  - Chest pain [Unknown]
  - Memory impairment [Unknown]
  - Drug dose omission [Not Recovered/Not Resolved]
  - Drug ineffective [Unknown]
